FAERS Safety Report 14073794 (Version 1)
Quarter: 2017Q4

REPORT INFORMATION
  Report Type: Spontaneous
  Country: US (occurrence: US)
  Receive Date: 20171010
  Receipt Date: 20171010
  Transmission Date: 20180321
  Serious: No
  Sender: FDA-Public Use
  Company Number: US-JNJFOC-20170905803

PATIENT
  Age: 88 Year
  Sex: Male
  Weight: 75.3 kg

DRUGS (5)
  1. ULORIC [Concomitant]
     Active Substance: FEBUXOSTAT
     Indication: GOUT
     Route: 065
  2. PANTOPRAZOLE [Concomitant]
     Active Substance: PANTOPRAZOLE
     Indication: GASTROOESOPHAGEAL REFLUX DISEASE
     Route: 065
  3. CARBINOXAMINE [Concomitant]
     Active Substance: CARBINOXAMINE
     Indication: PARKINSON^S DISEASE
     Dosage: 20 X4
     Route: 065
  4. TYLENOL REGULAR STRENGTH [Suspect]
     Active Substance: ACETAMINOPHEN
     Indication: NEUROPATHY PERIPHERAL
     Dosage: 1-2 TABLETS, EVERYDAY AT 400H
     Route: 048
     Dates: start: 201707
  5. FUROSEMIDE. [Concomitant]
     Active Substance: FUROSEMIDE
     Indication: DIURETIC THERAPY
     Route: 065

REACTIONS (3)
  - Blood pressure increased [Recovered/Resolved]
  - Product use in unapproved indication [Recovered/Resolved]
  - Constipation [Recovered/Resolved]
